FAERS Safety Report 9843514 (Version 2)
Quarter: 2014Q1

REPORT INFORMATION
  Report Type: Spontaneous
  Country: IL (occurrence: IL)
  Receive Date: 20140125
  Receipt Date: 20140211
  Transmission Date: 20141002
  Serious: Yes (Other)
  Sender: FDA-Public Use
  Company Number: IL-VERTEX PHARMACEUTICALS INC-2014-000384

PATIENT
  Age: 58 Year
  Sex: Female

DRUGS (1)
  1. INCIVO [Suspect]
     Indication: HEPATITIS C
     Route: 048
     Dates: start: 20131010

REACTIONS (1)
  - Depression [Unknown]
